FAERS Safety Report 5354911-3 (Version None)
Quarter: 2007Q2

REPORT INFORMATION
  Report Type: 
  Country: None (occurrence: None)
  Receive Date: 20070516
  Receipt Date: 20060728
  Transmission Date: 20071010
  Serious: Yes (Other)
  Sender: FDA-Public Use
  Company Number: 2006075071

PATIENT
  Age: 24 Year
  Sex: Female

DRUGS (1)
  1. DEPO-PROVERA [Suspect]
     Indication: CONTRACEPTION
     Dosage: 150 MG (150 MG, EVERY THREE MONTHS, LAST INJECTION), INTRAMUSCULAR
     Route: 030
     Dates: start: 20060116, end: 20060116

REACTIONS (1)
  - UNINTENDED PREGNANCY [None]
